FAERS Safety Report 5141805-1 (Version None)
Quarter: 2006Q4

REPORT INFORMATION
  Report Type: 
  Country: None (occurrence: None)
  Receive Date: 20061027
  Receipt Date: 20061017
  Transmission Date: 20070319
  Serious: Yes (Other)
  Sender: FDA-Public Use
  Company Number: 2006128388

PATIENT

DRUGS (1)
  1. ALPRAZOLAM [Suspect]
     Dosage: ORAL
     Route: 048

REACTIONS (1)
  - CATARACT [None]
